FAERS Safety Report 20835683 (Version 1)
Quarter: 2022Q2

REPORT INFORMATION
  Report Type: Spontaneous
  Country: US (occurrence: US)
  Receive Date: 20220516
  Receipt Date: 20220516
  Transmission Date: 20220720
  Serious: No
  Sender: FDA-Public Use
  Company Number: US-PFIZER INC-2021377396

PATIENT
  Age: 85 Year
  Sex: Female

DRUGS (1)
  1. FELDENE [Suspect]
     Active Substance: PIROXICAM
     Dosage: UNK, DAILY (TAKE 1-2 CAPSULES (10-20MG TOTAL) BY MOUTH DAILY)
     Route: 048
     Dates: start: 20210318

REACTIONS (2)
  - Therapeutic product effect incomplete [Unknown]
  - Product prescribing error [Unknown]
